FAERS Safety Report 9335709 (Version 2)
Quarter: 2013Q4

REPORT INFORMATION
  Report Type: Spontaneous
  Country: US (occurrence: US)
  Receive Date: 20130605
  Receipt Date: 20131018
  Transmission Date: 20140711
  Serious: Yes (Hospitalization)
  Sender: FDA-Public Use
  Company Number: US-BAYER-2013-068269

PATIENT
  Age: 39 Year
  Sex: Female
  Weight: 146.49 kg

DRUGS (3)
  1. YASMIN [Suspect]
     Indication: MENSTRUAL CYCLE MANAGEMENT
     Dosage: UNK
     Dates: start: 200203
  2. ZESTORETIC [Concomitant]
  3. ZIAC [Concomitant]

REACTIONS (7)
  - Deep vein thrombosis [None]
  - Injury [None]
  - Pain [None]
  - General physical health deterioration [None]
  - Anxiety [None]
  - Emotional distress [None]
  - Pain [None]
